FAERS Safety Report 4863293-2 (Version None)
Quarter: 2005Q4

REPORT INFORMATION
  Report Type: 
  Country: None (occurrence: None)
  Receive Date: 20051222
  Receipt Date: 20051114
  Transmission Date: 20060501
  Serious: Yes (Hospitalization)
  Sender: FDA-Public Use
  Company Number: FR-BOEHRINGER INGELHEIM PHARMACEUTICALS, INC.-2005-FF-00824FF

PATIENT
  Sex: Female
  Weight: 39 kg

DRUGS (10)
  1. MICARDIS [Suspect]
     Indication: CARDIAC FAILURE
     Route: 048
     Dates: start: 20050923, end: 20051104
  2. CORDARONE [Concomitant]
     Indication: ATRIAL FIBRILLATION
     Dosage: HALF TABLET 5 DAYS PER WEEK
  3. LEVOTHYROXINE SODIUM [Concomitant]
     Indication: HYPOTHYROIDISM
  4. MAGNESIUM [Concomitant]
  5. IRON [Concomitant]
  6. VITAMINS [Concomitant]
  7. ALDACTONE [Concomitant]
  8. LASILIX [Concomitant]
  9. ZYLORIC [Concomitant]
     Indication: HYPERURICAEMIA
  10. MUCOLATOR [Concomitant]

REACTIONS (2)
  - AGITATION [None]
  - HALLUCINATION, VISUAL [None]
